FAERS Safety Report 8964520 (Version 1)
Quarter: 2012Q4

REPORT INFORMATION
  Report Type: 
  Country: FR (occurrence: FR)
  Receive Date: 20121214
  Receipt Date: 20121214
  Transmission Date: 20130627
  Serious: Yes (Hospitalization)
  Sender: FDA-Public Use
  Company Number: FR-009507513-1212FRA003886

PATIENT
  Age: 73 Year
  Sex: Female

DRUGS (8)
  1. TIENAM 500MG/500MG, POUDRE POUR PERFUSION [Suspect]
     Indication: CANDIDIASIS
     Dosage: UNK
     Route: 042
     Dates: start: 20121031, end: 20121105
  2. TIENAM 500MG/500MG, POUDRE POUR PERFUSION [Suspect]
     Indication: ERYSIPELAS
     Dosage: UNK
  3. TRIFLUCAN [Suspect]
     Indication: CANDIDIASIS
     Dosage: 12 mg/kg, UNK
     Route: 042
     Dates: start: 20121102, end: 20121102
  4. TRIFLUCAN [Suspect]
     Indication: ERYSIPELAS
     Dosage: 6 mg/kg, qd
     Route: 042
     Dates: start: 20121103, end: 20121105
  5. TAZOCILLINE [Concomitant]
     Dosage: UNK
     Dates: start: 20120924, end: 20121031
  6. TAZOCILLINE [Concomitant]
     Dosage: UNK
     Dates: start: 20121105, end: 20121107
  7. VANCOMYCIN [Concomitant]
     Indication: CANDIDIASIS
     Dosage: UNK
     Dates: start: 20121024, end: 20121108
  8. VANCOMYCIN [Concomitant]
     Indication: ERYSIPELAS

REACTIONS (3)
  - Pruritus [Recovered/Resolved]
  - Rash [Recovered/Resolved]
  - Eyelid oedema [Recovered/Resolved]
